FAERS Safety Report 18024502 (Version 4)
Quarter: 2021Q4

REPORT INFORMATION
  Report Type: Spontaneous
  Country: DE (occurrence: US)
  Receive Date: 20200714
  Receipt Date: 20211216
  Transmission Date: 20220303
  Serious: Yes (Hospitalization, Other)
  Sender: FDA-Public Use
  Company Number: 2020SE87313

PATIENT
  Age: 49 Year
  Sex: Female
  Weight: 109 kg

DRUGS (23)
  1. FULVESTRANT [Suspect]
     Active Substance: FULVESTRANT
     Indication: Breast cancer
     Dosage: UNKNOWN
     Route: 065
     Dates: start: 20171215, end: 20210929
  2. PALBOCICLIB [Suspect]
     Active Substance: PALBOCICLIB
     Indication: Breast cancer
     Route: 048
     Dates: start: 20171215, end: 20200612
  3. XGEVA [Suspect]
     Active Substance: DENOSUMAB
     Indication: Metastases to bone
     Dosage: UNKNOWN
     Route: 058
     Dates: start: 20160830, end: 20200317
  4. RIVAROXABAN [Concomitant]
     Active Substance: RIVAROXABAN
     Indication: Hypercoagulation
     Dosage: UNK
     Route: 065
     Dates: start: 20160804, end: 20210122
  5. CHOLECALCIFEROL [Concomitant]
     Active Substance: CHOLECALCIFEROL
     Indication: Depression
     Dosage: UNK
     Route: 065
     Dates: start: 20171130
  6. ACETAZOLAMIDE [Concomitant]
     Active Substance: ACETAZOLAMIDE
     Indication: Cataract
     Dosage: UNK
     Route: 065
     Dates: start: 20200127, end: 20200501
  7. PANTOPRAZOLE [Concomitant]
     Active Substance: PANTOPRAZOLE
     Indication: Prophylaxis
     Dosage: UNK
     Route: 065
     Dates: start: 20171130
  8. CIPROFLOXACIN [Concomitant]
     Active Substance: CIPROFLOXACIN
     Indication: Nail bed inflammation
     Dosage: UNK
     Route: 065
     Dates: start: 20181011, end: 20181017
  9. BUPROPION HYDROCHLORIDE [Concomitant]
     Active Substance: BUPROPION HYDROCHLORIDE
     Indication: Depression
     Dosage: UNK
     Route: 065
     Dates: start: 20180319, end: 20191005
  10. LEVOTHYROXINE SODIUM [Concomitant]
     Active Substance: LEVOTHYROXINE SODIUM
     Indication: Hypothyroidism
     Dosage: UNK
     Route: 065
     Dates: start: 20160718
  11. MELOXICAM [Concomitant]
     Active Substance: MELOXICAM
     Indication: Arthralgia
     Dosage: UNK
     Route: 065
     Dates: start: 20190514
  12. MIRTAZAPIN RATIOPHARM [Concomitant]
     Indication: Depression
     Dosage: UNK
     Route: 065
     Dates: start: 20170725, end: 20180514
  13. MIRTAZAPIN RATIOPHARM [Concomitant]
     Indication: Depression
     Dosage: UNK
     Dates: start: 20180515, end: 20210715
  14. METHOCARBAMOL [Concomitant]
     Active Substance: METHOCARBAMOL
     Indication: Metastases to bone
     Dosage: UNK
     Route: 065
     Dates: start: 20180111, end: 20180319
  15. NOVALGIN (METAMIZOLE SODIUM) [Concomitant]
     Active Substance: METAMIZOLE SODIUM
     Indication: Metastases to bone
     Dosage: UNK
     Route: 065
     Dates: start: 20171130, end: 20180319
  16. AMOXICILLIN [Concomitant]
     Active Substance: AMOXICILLIN
     Dates: start: 20200504, end: 20200510
  17. SERTRALINE [Concomitant]
     Active Substance: SERTRALINE HYDROCHLORIDE
     Route: 065
     Dates: start: 20200715, end: 20210318
  18. AGOMELATINE [Concomitant]
     Active Substance: AGOMELATINE
     Route: 065
     Dates: start: 20210323
  19. UNACID [SULTAMICILLIN TOSILATE] [Concomitant]
     Route: 065
     Dates: start: 20200206, end: 20200211
  20. CALCIUM [Concomitant]
     Active Substance: CALCIUM
     Route: 065
     Dates: start: 20201126
  21. TELMISARTAN [Concomitant]
     Active Substance: TELMISARTAN
     Route: 065
     Dates: start: 20210523, end: 20210708
  22. APIXABAN [Concomitant]
     Active Substance: APIXABAN
     Route: 065
     Dates: start: 20210201
  23. ACETAZOLAMIDE [Concomitant]
     Active Substance: ACETAZOLAMIDE
     Route: 065
     Dates: start: 20200203

REACTIONS (7)
  - Osteonecrosis of jaw [Recovered/Resolved]
  - Fall [Unknown]
  - Cataract [Recovered/Resolved]
  - Depression [Not Recovered/Not Resolved]
  - Polyneuropathy [Not Recovered/Not Resolved]
  - Cancer pain [Not Recovered/Not Resolved]
  - Glaucoma [Not Recovered/Not Resolved]

NARRATIVE: CASE EVENT DATE: 20170214
